FAERS Safety Report 8219563-3 (Version None)
Quarter: 2012Q1

REPORT INFORMATION
  Report Type: 
  Country: None (occurrence: None)
  Receive Date: 20120319
  Receipt Date: 20120309
  Transmission Date: 20120608
  Serious: Yes (Other)
  Sender: FDA-Public Use
  Company Number: FR-ASTRAZENECA-2012SE07634

PATIENT
  Age: 28415 Day
  Sex: Male
  Weight: 83 kg

DRUGS (8)
  1. MINI SINTROM [Concomitant]
     Indication: ATRIAL FIBRILLATION
  2. CRESTOR [Suspect]
     Indication: HYPERCHOLESTEROLAEMIA
     Route: 048
     Dates: start: 20110916, end: 20120109
  3. CORDARONE [Concomitant]
     Indication: ATRIAL FIBRILLATION
     Dosage: 1 DF DAILY 5 DAYS PER WEEK
  4. BISOPROLOL FUMARATE [Concomitant]
     Indication: CARDIAC FAILURE
  5. PANTOPRAZOLE SODIUM [Concomitant]
     Indication: GASTROOESOPHAGEAL REFLUX DISEASE
  6. VALSARTAN  AND HYDROCHLOROTHIAZIDE [Concomitant]
     Indication: HYPERTENSION
     Dosage: 160 MG / 25 MG DAILY
     Dates: end: 20120109
  7. ESCITALOPRAM OXALATE [Concomitant]
  8. BISOPROLOL FUMARATE [Concomitant]
     Indication: HYPERTENSION

REACTIONS (2)
  - GOUT [None]
  - RHABDOMYOLYSIS [None]
